FAERS Safety Report 7130188-3 (Version None)
Quarter: 2010Q4

REPORT INFORMATION
  Report Type: 
  Country: None (occurrence: None)
  Receive Date: 20101201
  Receipt Date: 20101028
  Transmission Date: 20110411
  Serious: Yes (Other)
  Sender: FDA-Public Use
  Company Number: GB-AMGEN-GBRCT2010001963

PATIENT

DRUGS (6)
  1. ETANERCEPT [Suspect]
     Indication: RHEUMATOID ARTHRITIS
     Dosage: 25 MG, 2 TIMES/WK
     Dates: start: 20040115, end: 20040515
  2. PREDNISOLONE [Concomitant]
     Dosage: UNKNOWN
  3. PARACETAMOL [Concomitant]
     Dosage: UNKNOWN
  4. FERROUS SULFATE TAB [Concomitant]
     Dosage: UNKNOWN
  5. FOLIC ACID [Concomitant]
     Dosage: UNKNOWN
  6. CELEBREX [Concomitant]
     Dosage: UNKNOWN

REACTIONS (1)
  - CERVIX CARCINOMA STAGE 0 [None]
